FAERS Safety Report 9356678 (Version 1)
Quarter: 2013Q2

REPORT INFORMATION
  Report Type: Report from Study
  Country: JP (occurrence: JP)
  Receive Date: 20130619
  Receipt Date: 20130619
  Transmission Date: 20140414
  Serious: Yes (Death, Other)
  Sender: FDA-Public Use
  Company Number: JP-BAXTER-2013BAX022689

PATIENT
  Age: 64 Year
  Sex: Female

DRUGS (38)
  1. CYCLOPHOSPHAMIDE FOR INJECTION, USP [Suspect]
     Indication: ACUTE LYMPHOCYTIC LEUKAEMIA
     Route: 065
  2. DORIPENEM [Suspect]
     Indication: ACUTE LYMPHOCYTIC LEUKAEMIA
     Route: 042
     Dates: start: 20100125, end: 20100204
  3. VINDESINE SULFATE [Suspect]
     Indication: ACUTE LYMPHOCYTIC LEUKAEMIA
     Route: 042
     Dates: start: 20091009, end: 20091030
  4. AMPHOTERICIN B [Suspect]
     Indication: PROPHYLAXIS
     Route: 042
     Dates: start: 20091009, end: 20091030
  5. AMPHOTERICIN B [Suspect]
     Route: 042
     Dates: end: 20091204
  6. AMPHOTERICIN B [Suspect]
     Route: 042
     Dates: start: 20100109, end: 20100217
  7. DAUNORUBICIN HYDROCHLORIDE [Suspect]
     Indication: ACUTE LYMPHOCYTIC LEUKAEMIA
     Route: 065
     Dates: start: 20100109, end: 20100217
  8. DASATINIB [Suspect]
     Indication: ACUTE LYMPHOCYTIC LEUKAEMIA
     Route: 048
     Dates: start: 20091010, end: 20091208
  9. DASATINIB [Suspect]
     Route: 048
     Dates: start: 20091222, end: 20100108
  10. DASATINIB [Suspect]
     Route: 048
     Dates: start: 20100112, end: 20100131
  11. DASATINIB [Suspect]
     Route: 048
     Dates: end: 20100201
  12. DASATINIB [Suspect]
     Route: 048
     Dates: start: 20100205
  13. DASATINIB [Suspect]
     Route: 048
     Dates: start: 20100226, end: 20100420
  14. MAXIPIME [Concomitant]
     Indication: PRODUCT USED FOR UNKNOWN INDICATION
     Route: 065
     Dates: start: 20091008, end: 20091014
  15. ROCEPHIN [Concomitant]
     Indication: PRODUCT USED FOR UNKNOWN INDICATION
     Route: 065
     Dates: start: 20100113, end: 20100120
  16. HUMAN SERUM ALBUMIN [Concomitant]
     Indication: PRODUCT USED FOR UNKNOWN INDICATION
     Route: 065
     Dates: start: 20100129, end: 20100131
  17. AMIKACIN SULFATE [Concomitant]
     Indication: PRODUCT USED FOR UNKNOWN INDICATION
     Route: 065
     Dates: start: 20091116
  18. OMEPRAZOLE [Concomitant]
     Indication: PRODUCT USED FOR UNKNOWN INDICATION
     Route: 065
  19. ZYLORIC [Concomitant]
     Indication: PRODUCT USED FOR UNKNOWN INDICATION
     Route: 065
  20. MUCOSTA [Concomitant]
     Indication: PRODUCT USED FOR UNKNOWN INDICATION
     Route: 065
  21. GASMOTIN [Concomitant]
     Indication: PRODUCT USED FOR UNKNOWN INDICATION
     Route: 065
  22. URSO [Concomitant]
     Indication: PRODUCT USED FOR UNKNOWN INDICATION
     Route: 065
     Dates: start: 20100108
  23. LASIX [Concomitant]
     Indication: PROPHYLAXIS
     Route: 042
     Dates: start: 20091117, end: 20091123
  24. LASIX [Concomitant]
     Route: 042
     Dates: start: 20091124, end: 20121205
  25. ROHYPNOL [Concomitant]
     Indication: PROPHYLAXIS
     Route: 065
     Dates: start: 20091117, end: 20091123
  26. VENOGLOBULIN [Concomitant]
     Indication: PRODUCT USED FOR UNKNOWN INDICATION
     Route: 065
     Dates: start: 20100220, end: 20100220
  27. FUNGUARD [Concomitant]
     Indication: PRODUCT USED FOR UNKNOWN INDICATION
     Route: 065
     Dates: start: 20100308, end: 20100409
  28. AZACTAM [Concomitant]
     Indication: PRODUCT USED FOR UNKNOWN INDICATION
     Route: 065
     Dates: start: 20100226, end: 20100305
  29. VFEND [Concomitant]
     Indication: PRODUCT USED FOR UNKNOWN INDICATION
     Route: 065
     Dates: start: 20100218, end: 20100308
  30. BAKTAR [Concomitant]
     Indication: PRODUCT USED FOR UNKNOWN INDICATION
     Route: 065
  31. BAKTAR [Concomitant]
     Route: 065
  32. SENNA LEAF [Concomitant]
     Indication: PRODUCT USED FOR UNKNOWN INDICATION
     Route: 065
  33. NEU-UP [Concomitant]
     Indication: WHITE BLOOD CELL COUNT DECREASED
     Route: 065
     Dates: start: 20091024, end: 20091029
  34. POLYMIXIN B SULFATE [Concomitant]
     Indication: PRODUCT USED FOR UNKNOWN INDICATION
     Route: 065
  35. NEO-MINOPHAGEN C [Concomitant]
     Indication: PRODUCT USED FOR UNKNOWN INDICATION
     Route: 065
     Dates: start: 20091109, end: 20091130
  36. LEUCOVORIN [Concomitant]
     Indication: TOXICITY TO VARIOUS AGENTS
     Route: 042
     Dates: start: 20091111, end: 20091111
  37. LEUCOVORIN [Concomitant]
     Route: 042
     Dates: start: 20091112, end: 20091112
  38. ACETAZOLAMIDE [Concomitant]
     Indication: PROPHYLAXIS
     Route: 042
     Dates: start: 20091111, end: 20091116

REACTIONS (4)
  - Death [Fatal]
  - Gastrointestinal haemorrhage [Recovered/Resolved]
  - Liver disorder [Not Recovered/Not Resolved]
  - Liver disorder [Not Recovered/Not Resolved]
